FAERS Safety Report 13254248 (Version 5)
Quarter: 2024Q4

REPORT INFORMATION
  Report Type: Report from Study
  Country: JP (occurrence: JP)
  Receive Date: 20170221
  Receipt Date: 20241105
  Transmission Date: 20250114
  Serious: Yes (Death, Other)
  Sender: AMGEN
  Company Number: JP-KYOWAKIRIN-2017JPN-NSP000116AA

PATIENT
  Age: 71 Year
  Sex: Female
  Weight: 50 kg

DRUGS (14)
  1. DARBEPOETIN ALFA [Suspect]
     Active Substance: DARBEPOETIN ALFA
     Indication: Myelodysplastic syndrome
     Dosage: 240 MICROGRAM
     Route: 058
     Dates: start: 20150727, end: 20150727
  2. DARBEPOETIN ALFA [Suspect]
     Active Substance: DARBEPOETIN ALFA
     Dosage: 120 MICROGRAM
     Route: 058
     Dates: start: 20150821, end: 20150821
  3. DARBEPOETIN ALFA [Suspect]
     Active Substance: DARBEPOETIN ALFA
     Dosage: 60 MUG, QWK
     Route: 058
     Dates: start: 20150828, end: 20150904
  4. ELDECALCITOL [Concomitant]
     Active Substance: ELDECALCITOL
     Indication: Product used for unknown indication
     Dosage: 0.75 MUG, UNK
     Route: 048
  5. NEXIUM [Concomitant]
     Active Substance: ESOMEPRAZOLE MAGNESIUM
     Indication: Product used for unknown indication
     Dosage: 20 MILLIGRAM
     Route: 048
  6. VIDAZA [Concomitant]
     Active Substance: AZACITIDINE
     Indication: Myelodysplastic syndrome
     Dosage: 100 MILLIGRAM
     Route: 065
  7. RAMOSETRON HYDROCHLORIDE [Concomitant]
     Active Substance: RAMOSETRON HYDROCHLORIDE
     Indication: Product used for unknown indication
     Dosage: 0.1 MG, QD
     Route: 048
  8. MORPHINE [Concomitant]
     Active Substance: MORPHINE
     Indication: Analgesic therapy
     Dosage: UNK
  9. ACETAMINOPHEN [Concomitant]
     Active Substance: ACETAMINOPHEN
     Indication: Analgesic therapy
     Dosage: UNK
  10. FENTANYL [Concomitant]
     Active Substance: FENTANYL
     Indication: Analgesic therapy
     Dosage: UNK
  11. REFLEX [Concomitant]
     Active Substance: MIRTAZAPINE
     Indication: Analgesic therapy
     Dosage: UNK
  12. HYDROXYZINE HYDROCHLORIDE [Concomitant]
     Active Substance: HYDROXYZINE HYDROCHLORIDE
     Indication: Analgesic therapy
     Dosage: UNK
  13. LOXOPROFEN SODIUM [Concomitant]
     Active Substance: LOXOPROFEN SODIUM
     Indication: Product used for unknown indication
     Dosage: 60 MILLIGRAM
     Route: 048
     Dates: start: 20150727, end: 20150728
  14. LOXOPROFEN SODIUM [Concomitant]
     Active Substance: LOXOPROFEN SODIUM
     Dosage: 60 MILLIGRAM
     Route: 048
     Dates: start: 20150821, end: 20150824

REACTIONS (3)
  - Transformation to acute myeloid leukaemia [Fatal]
  - Pyrexia [Recovered/Resolved]
  - Pyrexia [Recovered/Resolved]

NARRATIVE: CASE EVENT DATE: 20150727
